FAERS Safety Report 8769261 (Version 2)
Quarter: 2012Q4

REPORT INFORMATION
  Report Type: 
  Country: DE (occurrence: DE)
  Receive Date: 20120905
  Receipt Date: 20120914
  Transmission Date: 20130627
  Serious: Yes (Other)
  Sender: FDA-Public Use
  Company Number: DE-AMGEN-DEUSP2012055749

PATIENT
  Sex: Female

DRUGS (2)
  1. XGEVA [Suspect]
     Indication: METASTASES TO BONE
     Dosage: UNK
     Dates: start: 201205
  2. MYFORTIC [Concomitant]
     Indication: WEGENER^S GRANULOMATOSIS

REACTIONS (4)
  - Metastases to bone [Unknown]
  - Hip arthroplasty [Unknown]
  - Tumour marker increased [Unknown]
  - Device failure [Unknown]
